FAERS Safety Report 22271151 (Version 2)
Quarter: 2023Q2

REPORT INFORMATION
  Report Type: Report from Study
  Country: US (occurrence: US)
  Receive Date: 20230501
  Receipt Date: 20230602
  Transmission Date: 20230722
  Serious: Yes (Death, Life-Threatening, Other)
  Sender: FDA-Public Use
  Company Number: US-TAKEDA-ALL1-2012-02652

PATIENT
  Age: 34 Year
  Sex: Male
  Weight: 47 kg

DRUGS (5)
  1. IDURSULFASE [Suspect]
     Active Substance: IDURSULFASE
     Indication: Mucopolysaccharidosis II
     Dosage: 0.51 MILLIGRAM/KILOGRAM, 1/WEEK
     Route: 041
     Dates: start: 20000403
  2. IDURSULFASE [Suspect]
     Active Substance: IDURSULFASE
     Dosage: 0.5 MILLIGRAM/KILOGRAM, 1/WEEK
     Route: 041
     Dates: start: 20090404, end: 20120522
  3. EPIPEN [Concomitant]
     Active Substance: EPINEPHRINE
     Indication: Infusion related reaction
     Dosage: UNK
     Route: 058
     Dates: start: 2007
  4. URSODIOL [Concomitant]
     Active Substance: URSODIOL
     Indication: Gallbladder disorder
     Dosage: UNK
     Route: 048
     Dates: start: 20100609
  5. ENALAPRIL [Concomitant]
     Active Substance: ENALAPRIL
     Indication: Cardiac failure congestive
     Dosage: UNK
     Route: 048
     Dates: start: 20100610

REACTIONS (1)
  - Death [Fatal]

NARRATIVE: CASE EVENT DATE: 20120522
